FAERS Safety Report 23406482 (Version 1)
Quarter: 2024Q1

REPORT INFORMATION
  Report Type: Spontaneous
  Country: US (occurrence: None)
  Receive Date: 20240116
  Receipt Date: 20240116
  Transmission Date: 20240410
  Serious: No
  Sender: FDA-Public Use
  Company Number: 2023A239559

PATIENT
  Sex: Male

DRUGS (2)
  1. IMJUDO [Suspect]
     Active Substance: TREMELIMUMAB\TREMELIMUMAB-ACTL
     Route: 042
  2. DURVALUMAB [Concomitant]
     Active Substance: DURVALUMAB

REACTIONS (1)
  - Arthralgia [Recovered/Resolved]
